FAERS Safety Report 23392233 (Version 1)
Quarter: 2024Q1

REPORT INFORMATION
  Report Type: Spontaneous
  Country: US (occurrence: US)
  Receive Date: 20240111
  Receipt Date: 20240111
  Transmission Date: 20240410
  Serious: No
  Sender: FDA-Public Use
  Company Number: US-REGENERON PHARMACEUTICALS, INC.-2023-053426

PATIENT
  Sex: Male

DRUGS (6)
  1. EYLEA [Suspect]
     Active Substance: AFLIBERCEPT
     Indication: Diabetic retinopathy
     Dosage: RIGHT EYE
     Route: 031
     Dates: start: 2015
  2. EYLEA [Suspect]
     Active Substance: AFLIBERCEPT
     Dosage: LEFT EYE
     Route: 031
     Dates: start: 2015
  3. EYLEA [Suspect]
     Active Substance: AFLIBERCEPT
     Dosage: RESUMED IN RIGHT EYE AT UNK FREQUENCY, FORMULATION: UNKNOWN
     Route: 031
  4. EYLEA [Suspect]
     Active Substance: AFLIBERCEPT
     Dosage: BOTH EYES, EVERY 4 WEEKS, FORMULATION: UNKNOWN
     Route: 031
  5. EYLEA [Suspect]
     Active Substance: AFLIBERCEPT
     Dosage: BOTH EYES, EVERY 6 WEEKS, FORMULATION: UNKNOWN
     Route: 031
  6. EYLEA [Suspect]
     Active Substance: AFLIBERCEPT
     Dosage: BOTH EYES, EVERY 8 WEEKS, FORMULATION: UNKNOWN
     Route: 031

REACTIONS (4)
  - Visual impairment [Unknown]
  - Eye discharge [Unknown]
  - Neovascularisation [Unknown]
  - Vitreous floaters [Unknown]
